FAERS Safety Report 6308403-5 (Version None)
Quarter: 2009Q3

REPORT INFORMATION
  Report Type: 
  Country: None (occurrence: None)
  Receive Date: 20090813
  Receipt Date: 20090806
  Transmission Date: 20100115
  Serious: Yes (Hospitalization, Other)
  Sender: FDA-Public Use
  Company Number: FR-AVENTIS-200912521FR

PATIENT
  Age: 64 Year
  Sex: Female
  Weight: 77 kg

DRUGS (5)
  1. LANTUS [Suspect]
     Route: 058
     Dates: start: 20040901
  2. OTHER ANTINEOPLASTIC AGENTS [Suspect]
     Route: 048
     Dates: start: 20060101
  3. NOVORAPID [Concomitant]
     Route: 058
     Dates: start: 19970101
  4. TRIATEC                            /00885601/ [Concomitant]
     Route: 048
     Dates: start: 20080101
  5. KARDEGIC                           /00002703/ [Concomitant]
     Indication: CARDIOVASCULAR EVENT PROPHYLAXIS
     Route: 048
     Dates: start: 20080101

REACTIONS (2)
  - BREAST CANCER FEMALE [None]
  - CHRONIC MYELOID LEUKAEMIA [None]
